FAERS Safety Report 16290279 (Version 1)
Quarter: 2019Q2

REPORT INFORMATION
  Report Type: Spontaneous
  Country: US (occurrence: US)
  Receive Date: 20190509
  Receipt Date: 20190509
  Transmission Date: 20190711
  Serious: Yes (Other)
  Sender: FDA-Public Use
  Company Number: US-SA-2019SA125926

PATIENT

DRUGS (1)
  1. HYDROCORTISONE. [Suspect]
     Active Substance: HYDROCORTISONE
     Dosage: UNK

REACTIONS (11)
  - Skin burning sensation [Unknown]
  - Lymphadenopathy [Unknown]
  - Rash generalised [Unknown]
  - Skin exfoliation [Unknown]
  - Drug dependence [Unknown]
  - Insomnia [Unknown]
  - Urticaria [Unknown]
  - Discharge [Unknown]
  - Body temperature abnormal [Unknown]
  - Pruritus [Unknown]
  - Eczema [Unknown]
